FAERS Safety Report 10268178 (Version 1)
Quarter: 2014Q2

REPORT INFORMATION
  Report Type: Spontaneous
  Country: IE (occurrence: IE)
  Receive Date: 20140630
  Receipt Date: 20140630
  Transmission Date: 20141212
  Serious: Yes (Other)
  Sender: FDA-Public Use
  Company Number: IE-009507513-1406IRL013888

PATIENT
  Sex: 0

DRUGS (1)
  1. JANUMET [Suspect]
     Dosage: UNKNOWN

REACTIONS (1)
  - Gastrostomy [Unknown]
